FAERS Safety Report 5800397-1 (Version None)
Quarter: 2008Q3

REPORT INFORMATION
  Report Type: 
  Country: None (occurrence: None)
  Receive Date: 20080703
  Receipt Date: 20080624
  Transmission Date: 20090109
  Serious: Yes (Life-Threatening, Disabling)
  Sender: FDA-Public Use
  Company Number: US-MERCK-0805USA02325

PATIENT
  Age: 16 Year
  Sex: Female

DRUGS (6)
  1. SINGULAIR [Suspect]
     Indication: ASTHMA
     Route: 048
     Dates: start: 20010101
  2. PREVACID [Concomitant]
     Route: 065
  3. VERAMYST [Concomitant]
     Route: 065
  4. HORMONAL CONTRACEPTIVES (UNSPECIFIED) [Concomitant]
     Route: 065
  5. XOPENEX [Concomitant]
     Route: 065
  6. SINGULAIR [Suspect]
     Route: 048
     Dates: end: 20080402

REACTIONS (8)
  - ABNORMAL BEHAVIOUR [None]
  - ANXIETY [None]
  - DEPRESSION [None]
  - EMOTIONAL DISORDER [None]
  - FEELING GUILTY [None]
  - IRRITABILITY [None]
  - SELF ESTEEM DECREASED [None]
  - THINKING ABNORMAL [None]
